FAERS Safety Report 10732054 (Version 1)
Quarter: 2015Q1

REPORT INFORMATION
  Report Type: Spontaneous
  Country: US (occurrence: None)
  Receive Date: 20150120
  Receipt Date: 20150120
  Transmission Date: 20150721
  Serious: Yes (Death, Hospitalization)
  Sender: FDA-Public Use
  Company Number: US-ALKEM-000813

PATIENT
  Age: 71 Year
  Sex: Female

DRUGS (5)
  1. METFORMIN [Suspect]
     Active Substance: METFORMIN HYDROCHLORIDE
     Indication: PRODUCT USED FOR UNKNOWN INDICATION
  2. METOPROLOL TARTRATE. [Concomitant]
     Active Substance: METOPROLOL TARTRATE
  3. NOVOLIN R [Concomitant]
     Active Substance: INSULIN HUMAN
  4. POTASSIUM [Concomitant]
     Active Substance: POTASSIUM
  5. LASIX [Concomitant]
     Active Substance: FUROSEMIDE

REACTIONS (11)
  - Lactic acidosis [None]
  - Toxicity to various agents [None]
  - Hypotension [None]
  - Shock [None]
  - Pancreatitis [None]
  - Tachycardia [None]
  - Acute respiratory failure [None]
  - Acute kidney injury [None]
  - Pulmonary hypertension [None]
  - Metabolic acidosis [None]
  - Tachypnoea [None]
